FAERS Safety Report 4289176-7 (Version None)
Quarter: 2004Q1

REPORT INFORMATION
  Report Type: 
  Country: None (occurrence: None)
  Receive Date: 20040209
  Receipt Date: 20040209
  Transmission Date: 20041129
  Serious: Yes (Life-Threatening, Hospitalization)
  Sender: FDA-Public Use
  Company Number: None

PATIENT
  Age: 16 Year
  Sex: Female
  Weight: 136.0791 kg

DRUGS (2)
  1. PAXIL [Suspect]
     Indication: BIPOLAR DISORDER
     Dosage: DAILY ORAL
     Route: 048
     Dates: start: 20020301, end: 20001001
  2. PAXIL [Suspect]
     Indication: DEPRESSION
     Dosage: DAILY ORAL
     Route: 048
     Dates: start: 20020301, end: 20001001

REACTIONS (8)
  - DEPRESSED MOOD [None]
  - DISTURBANCE IN ATTENTION [None]
  - FEELING ABNORMAL [None]
  - INTENTIONAL SELF-INJURY [None]
  - NAUSEA [None]
  - OVERDOSE [None]
  - SCAR [None]
  - SUICIDE ATTEMPT [None]
